FAERS Safety Report 5081732-1 (Version None)
Quarter: 2006Q3

REPORT INFORMATION
  Report Type: 
  Country: None (occurrence: None)
  Receive Date: 20060816
  Receipt Date: 20060809
  Transmission Date: 20061208
  Serious: Yes (Death, Hospitalization)
  Sender: FDA-Public Use
  Company Number: PHHO2006MX13132

PATIENT
  Age: 52 Year
  Sex: Female

DRUGS (5)
  1. FUROSEMIDE [Concomitant]
  2. LASILACTON [Concomitant]
  3. SABRIL [Concomitant]
  4. LEGALON [Concomitant]
  5. ZELMAC / HTF 919A [Suspect]
     Indication: CONSTIPATION
     Dosage: 6 MG, BID
     Route: 048
     Dates: start: 20060201, end: 20060616

REACTIONS (1)
  - COMA HEPATIC [None]
